FAERS Safety Report 4551030-0 (Version None)
Quarter: 2005Q1

REPORT INFORMATION
  Report Type: 
  Country: None (occurrence: None)
  Receive Date: 20050113
  Receipt Date: 20040419
  Transmission Date: 20050727
  Serious: No
  Sender: FDA-Public Use
  Company Number: US-BRISTOL-MYERS SQUIBB COMPANY-12564217

PATIENT
  Age: 72 Year
  Sex: Female
  Weight: 54 kg

DRUGS (5)
  1. DESYREL [Suspect]
     Indication: MENOPAUSAL SYMPTOMS
     Route: 048
  2. SYNTHROID [Concomitant]
  3. TIAZAC [Concomitant]
  4. ZOCOR [Concomitant]
  5. NEXIUM [Concomitant]

REACTIONS (2)
  - DEPERSONALISATION [None]
  - DYSGEUSIA [None]
